FAERS Safety Report 5502180-3 (Version None)
Quarter: 2007Q4

REPORT INFORMATION
  Report Type: 
  Country: None (occurrence: None)
  Receive Date: 20071026
  Receipt Date: 20071010
  Transmission Date: 20080405
  Serious: No
  Sender: FDA-Public Use
  Company Number: 8027483

PATIENT
  Sex: Male
  Weight: 30 kg

DRUGS (2)
  1. METHYLPHENIDATE HCL [Suspect]
     Indication: ATTENTION DEFICIT/HYPERACTIVITY DISORDER
     Dosage: 10 MG/D PO
     Route: 048
     Dates: start: 20070815, end: 20070821
  2. RISPERIDONE [Concomitant]

REACTIONS (3)
  - DYSKINESIA [None]
  - PSYCHOMOTOR HYPERACTIVITY [None]
  - TIC [None]
